FAERS Safety Report 10612374 (Version 5)
Quarter: 2015Q1

REPORT INFORMATION
  Report Type: Spontaneous
  Country: AU (occurrence: AU)
  Receive Date: 20141127
  Receipt Date: 20150102
  Transmission Date: 20150720
  Serious: Yes (Other)
  Sender: FDA-Public Use
  Company Number: AU-ROCHE-1495606

PATIENT
  Age: 84 Year
  Sex: Female

DRUGS (2)
  1. LUCENTIS [Suspect]
     Active Substance: RANIBIZUMAB
     Dosage: 0.5 MCG/0.05 ML (9 WEEK INTERVAL, IN LEFT EYE)?23RD INJECTION
     Route: 050
     Dates: start: 20141114, end: 20141114
  2. LUCENTIS [Suspect]
     Active Substance: RANIBIZUMAB
     Indication: AGE-RELATED MACULAR DEGENERATION
     Dosage: 0.5 MCG/0.05 ML (9 WEEK INTERVAL, IN LEFT EYE)?THE MOST RECENT DOSE PRIOR TO AE: 14/NOV/2014
     Route: 050
     Dates: start: 20110415

REACTIONS (3)
  - Poor quality drug administered [Unknown]
  - Visual impairment [Not Recovered/Not Resolved]
  - Foreign body in eye [Not Recovered/Not Resolved]

NARRATIVE: CASE EVENT DATE: 20141114
